FAERS Safety Report 10211318 (Version 1)
Quarter: 2014Q2

REPORT INFORMATION
  Report Type: Spontaneous
  Country: US (occurrence: US)
  Receive Date: 20140602
  Receipt Date: 20140602
  Transmission Date: 20141212
  Serious: Yes (Hospitalization)
  Sender: FDA-Public Use
  Company Number: US-B.I. PHARMACEUTICALS,INC./RIDGEFIELD-2014-BI-23753BP

PATIENT
  Age: 66 Year
  Sex: Female
  Weight: 74 kg

DRUGS (10)
  1. SPIRIVA [Suspect]
     Indication: CHRONIC OBSTRUCTIVE PULMONARY DISEASE
     Dosage: 15 MCG
     Route: 055
     Dates: start: 2009
  2. COREG [Concomitant]
     Indication: HYPERTENSION
     Dosage: 12.5 MG
     Route: 048
  3. LISINOPRIL [Concomitant]
     Indication: HYPERTENSION
     Dosage: 40 MG
     Route: 048
  4. CITALOPRAM [Concomitant]
     Indication: ANXIETY
     Dosage: 20 MG
     Route: 048
  5. DIPHENHYDRAMINE [Concomitant]
     Dosage: 25 MG
     Route: 048
  6. IRON PILL [Concomitant]
     Dosage: 65 MG
     Route: 048
  7. CELEXA [Concomitant]
     Dosage: 20 MG
     Route: 048
  8. ATORVASTATIN [Concomitant]
     Indication: BLOOD CHOLESTEROL INCREASED
     Dosage: 10 MG
     Route: 048
  9. AMLODIPINE [Concomitant]
     Indication: BLOOD CHOLESTEROL INCREASED
     Dosage: 10 MG
     Route: 048
  10. HYDROCODONE [Concomitant]
     Indication: BACK PAIN
     Dosage: 500 MG
     Route: 048

REACTIONS (2)
  - Vesical fistula [Not Recovered/Not Resolved]
  - Colonic fistula [Not Recovered/Not Resolved]
